FAERS Safety Report 16431442 (Version 1)
Quarter: 2019Q3

REPORT INFORMATION
  Report Type: Spontaneous
  Country: US (occurrence: US)
  Receive Date: 20190613
  Receipt Date: 20190613
  Transmission Date: 20191004
  Serious: Yes (Hospitalization)
  Sender: FDA-Public Use
  Company Number: None

PATIENT
  Age: 78 Year
  Sex: Male

DRUGS (19)
  1. PREDNISONE. [Concomitant]
     Active Substance: PREDNISONE
  2. ISOSORB MONO [Concomitant]
     Active Substance: ISOSORBIDE MONONITRATE
  3. ENBREL [Suspect]
     Active Substance: ETANERCEPT
     Indication: RHEUMATOID ARTHRITIS
     Dosage: ?          OTHER FREQUENCY:QWK;?
     Route: 058
     Dates: start: 20171121
  4. GLIMERPIRIDE [Concomitant]
     Active Substance: GLIMEPIRIDE
  5. JANUVIA [Concomitant]
     Active Substance: SITAGLIPTIN PHOSPHATE
  6. LOVASTATIN. [Concomitant]
     Active Substance: LOVASTATIN
  7. METHOTREXATE. [Concomitant]
     Active Substance: METHOTREXATE
  8. AMLODIPINE [Concomitant]
     Active Substance: AMLODIPINE BESYLATE
  9. CLOPIDOGREL [Concomitant]
     Active Substance: CLOPIDOGREL BISULFATE
  10. ROSUVASTATIN. [Concomitant]
     Active Substance: ROSUVASTATIN
  11. REPATHA [Suspect]
     Active Substance: EVOLOCUMAB
     Indication: TYPE V HYPERLIPIDAEMIA
     Dosage: ?          OTHER FREQUENCY:EVERY 14 DAYS;?
     Route: 058
     Dates: start: 20180306
  12. ELIQUIS [Concomitant]
     Active Substance: APIXABAN
  13. FOLIC ACID. [Concomitant]
     Active Substance: FOLIC ACID
  14. NITROGLYCERIN. [Concomitant]
     Active Substance: NITROGLYCERIN
  15. VITAMIN D [Concomitant]
     Active Substance: VITAMIN D NOS
  16. FENOFIBRIC [Concomitant]
     Active Substance: FENOFIBRIC ACID
  17. RAMIPRIL. [Concomitant]
     Active Substance: RAMIPRIL
  18. TRILIPIX [Concomitant]
     Active Substance: FENOFIBRIC ACID
  19. CARVEDILOL. [Concomitant]
     Active Substance: CARVEDILOL

REACTIONS (1)
  - Arterial repair [None]

NARRATIVE: CASE EVENT DATE: 20190523
